FAERS Safety Report 10066783 (Version 2)
Quarter: 2014Q2

REPORT INFORMATION
  Report Type: Spontaneous
  Country: NL (occurrence: NL)
  Receive Date: 20140408
  Receipt Date: 20140408
  Transmission Date: 20141212
  Serious: Yes (Other)
  Sender: FDA-Public Use
  Company Number: PHHY2014NL033017

PATIENT
  Sex: Female

DRUGS (3)
  1. GLIVEC [Suspect]
     Indication: GASTROINTESTINAL STROMAL TUMOUR
     Dosage: 400 MG, PER DAY
     Dates: start: 20020103
  2. TEMAZEPAM [Concomitant]
     Dosage: 10 MG
  3. PANTOPRAZOLE [Concomitant]
     Dosage: 40 MG

REACTIONS (4)
  - Osteoporosis [Not Recovered/Not Resolved]
  - Vitamin D deficiency [Unknown]
  - Rheumatic disorder [Unknown]
  - Arthralgia [Unknown]
